FAERS Safety Report 7913999-3 (Version None)
Quarter: 2011Q4

REPORT INFORMATION
  Report Type: 
  Country: None (occurrence: None)
  Receive Date: 20111110
  Receipt Date: 20111027
  Transmission Date: 20120403
  Serious: Yes (Other)
  Sender: FDA-Public Use
  Company Number: 2011-1168

PATIENT
  Sex: Female

DRUGS (2)
  1. BOTULINUM TOXIN TYPE A [Suspect]
     Indication: SKIN WRINKLING
     Dosage: 98 UNITS (98 UNITS, SINGLE CYCLE), INTRAMUSCULAR
     Route: 030
     Dates: start: 20110201, end: 20110201
  2. BOTULINUM TOXIN TYPE A [Suspect]
     Indication: OFF LABEL USE
     Dosage: 98 UNITS (98 UNITS, SINGLE CYCLE), INTRAMUSCULAR
     Route: 030
     Dates: start: 20110201, end: 20110201

REACTIONS (3)
  - INJECTION SITE NODULE [None]
  - SYSTEMIC LUPUS ERYTHEMATOSUS [None]
  - LIPOATROPHY [None]
